FAERS Safety Report 25736573 (Version 1)
Quarter: 2025Q3

REPORT INFORMATION
  Report Type: Spontaneous
  Country: CN (occurrence: CN)
  Receive Date: 20250828
  Receipt Date: 20250828
  Transmission Date: 20251021
  Serious: Yes (Hospitalization)
  Sender: ELI LILLY AND COMPANY
  Company Number: CN-Merck Healthcare KGaA-2025042269

PATIENT
  Age: 67 Year
  Sex: Female
  Weight: 40 kg

DRUGS (5)
  1. ERBITUX [Suspect]
     Active Substance: CETUXIMAB
     Indication: Rectal cancer
     Route: 041
     Dates: start: 20250701, end: 20250701
  2. SODIUM CHLORIDE [Concomitant]
     Active Substance: SODIUM CHLORIDE
     Indication: Medication dilution
     Dosage: 250 ML, DAILY
     Route: 041
     Dates: start: 20250701, end: 20250701
  3. DIPHENHYDRAMINE [Concomitant]
     Active Substance: DIPHENHYDRAMINE
     Indication: Premedication
     Dates: start: 20250701
  4. CIMETIDINE [Concomitant]
     Active Substance: CIMETIDINE
     Indication: Premedication
     Dates: start: 20250701
  5. DEXAMETHASONE [Concomitant]
     Active Substance: DEXAMETHASONE
     Indication: Premedication
     Dates: start: 20250701

REACTIONS (1)
  - Hepatic function abnormal [Recovering/Resolving]

NARRATIVE: CASE EVENT DATE: 20250805
